FAERS Safety Report 7917847-7 (Version None)
Quarter: 2011Q4

REPORT INFORMATION
  Report Type: 
  Country: None (occurrence: None)
  Receive Date: 20111116
  Receipt Date: 20111107
  Transmission Date: 20120403
  Serious: Yes (Hospitalization)
  Sender: FDA-Public Use
  Company Number: PHHY2011CN099169

PATIENT
  Age: 48 Year
  Sex: Male

DRUGS (1)
  1. DICLOFENAC SODIUM [Suspect]
     Indication: CONTUSION
     Dosage: 50MG (2 PILLS)

REACTIONS (5)
  - SKIN DEPIGMENTATION [None]
  - PAIN [None]
  - SKIN HAEMORRHAGE [None]
  - HYPOAESTHESIA [None]
  - HENOCH-SCHONLEIN PURPURA [None]
